FAERS Safety Report 24263155 (Version 1)
Quarter: 2024Q3

REPORT INFORMATION
  Report Type: Spontaneous
  Country: US (occurrence: US)
  Receive Date: 20240829
  Receipt Date: 20240829
  Transmission Date: 20241016
  Serious: No
  Sender: BAUSCH AND LOMB
  Company Number: US-BAUSCH-BL-2024-013004

PATIENT
  Age: 65 Year
  Sex: Female
  Weight: 71.732 kg

DRUGS (1)
  1. JUBLIA [Suspect]
     Active Substance: EFINACONAZOLE
     Indication: Onychomycosis
     Dosage: THE PATIENT HAD BEEN USING JUBLIA FOR ABOUT 60 DAYS
     Route: 061
     Dates: start: 202406

REACTIONS (2)
  - Application site pruritus [Unknown]
  - Application site exfoliation [Unknown]

NARRATIVE: CASE EVENT DATE: 20240801
